FAERS Safety Report 4606400-9 (Version None)
Quarter: 2005Q2

REPORT INFORMATION
  Report Type: 
  Country: None (occurrence: None)
  Receive Date: 20050223
  Receipt Date: 20041029
  Transmission Date: 20051028
  Serious: Yes (Other)
  Sender: FDA-Public Use
  Company Number: WAES 0411USA00018

PATIENT
  Age: 69 Year
  Sex: Male
  Weight: 102.9665 kg

DRUGS (9)
  1. ZOCOR [Suspect]
     Indication: BLOOD CHOLESTEROL INCREASED
     Dosage: SEE IMAGE
     Route: 048
     Dates: end: 20040519
  2. ZOCOR [Suspect]
     Indication: HYPERLIPIDAEMIA
     Dosage: SEE IMAGE
     Route: 048
     Dates: end: 20040519
  3. ZOCOR [Suspect]
     Indication: BLOOD CHOLESTEROL INCREASED
     Dosage: SEE IMAGE
     Route: 048
     Dates: start: 20040520, end: 20041008
  4. ZOCOR [Suspect]
     Indication: HYPERLIPIDAEMIA
     Dosage: SEE IMAGE
     Route: 048
     Dates: start: 20040520, end: 20041008
  5. ZOCOR [Suspect]
     Indication: BLOOD CHOLESTEROL INCREASED
     Dosage: SEE IMAGE
     Route: 048
     Dates: start: 19940101
  6. ZOCOR [Suspect]
     Indication: HYPERLIPIDAEMIA
     Dosage: SEE IMAGE
     Route: 048
     Dates: start: 19940101
  7. ZOCOR [Suspect]
     Indication: BLOOD CHOLESTEROL INCREASED
     Dosage: SEE IMAGE
     Route: 048
     Dates: start: 20041201
  8. ZOCOR [Suspect]
     Indication: HYPERLIPIDAEMIA
     Dosage: SEE IMAGE
     Route: 048
     Dates: start: 20041201
  9. PROPOXYPHENE NAPSYLATE [Concomitant]

REACTIONS (2)
  - MEDICATION ERROR [None]
  - MENTAL DISORDER [None]
